FAERS Safety Report 5878569-X (Version None)
Quarter: 2008Q3

REPORT INFORMATION
  Report Type: 
  Country: None (occurrence: None)
  Receive Date: 20080910
  Receipt Date: 20080902
  Transmission Date: 20090109
  Serious: Yes (Hospitalization)
  Sender: FDA-Public Use
  Company Number: 2008SP017967

PATIENT
  Age: 46 Year
  Sex: Male
  Weight: 84 kg

DRUGS (4)
  1. TEMOZOLOMIDE [Suspect]
     Indication: GLIOBLASTOMA MULTIFORME
     Dosage: 75 MG/M2; ; PO
     Route: 048
     Dates: start: 20080815, end: 20080828
  2. TEMOZOLOMIDE [Suspect]
     Indication: GLIOBLASTOMA MULTIFORME
     Dosage: 75 MG/M2; ; PO
     Route: 048
     Dates: start: 20071224
  3. TEMOZOLOMIDE [Suspect]
  4. TEMOZOLOMIDE [Suspect]

REACTIONS (1)
  - PNEUMONIA [None]
